FAERS Safety Report 5813647-2 (Version None)
Quarter: 2008Q3

REPORT INFORMATION
  Report Type: 
  Country: None (occurrence: None)
  Receive Date: 20080717
  Receipt Date: 20080714
  Transmission Date: 20090109
  Serious: Yes (Death, Life-Threatening, Hospitalization, Disabling, Congenital Anomaly, Other)
  Sender: FDA-Public Use
  Company Number: A0737479A

PATIENT
  Age: 0 Day
  Sex: Female

DRUGS (1)
  1. AVODART [Suspect]
     Indication: ACCIDENTAL EXPOSURE
     Dates: start: 20030101, end: 20060101

REACTIONS (4)
  - CONGENITAL KNEE DEFORMITY [None]
  - DRUG EXPOSURE DURING PREGNANCY [None]
  - TALIPES [None]
  - TRACHEO-OESOPHAGEAL FISTULA [None]
